FAERS Safety Report 21299240 (Version 2)
Quarter: 2022Q3

REPORT INFORMATION
  Report Type: Spontaneous
  Country: FR (occurrence: FR)
  Receive Date: 20220906
  Receipt Date: 20220913
  Transmission Date: 20221027
  Serious: No
  Sender: FDA-Public Use
  Company Number: FR-NOVARTISPH-NVSC2022FR198952

PATIENT
  Age: 78 Year
  Sex: Male
  Weight: 71.4 kg

DRUGS (13)
  1. RITUXIMAB [Suspect]
     Active Substance: RITUXIMAB
     Indication: Diffuse large B-cell lymphoma
     Dosage: 750 MG/M2, TIW (ON 12/JUL/2022 AT 3:45 PM, HE RECEIVED THE MOST RECENT DOSE OF RITUXIMAB (750 MG/M2)
     Route: 042
     Dates: start: 20220712
  2. CYCLOPHOSPHAMIDE [Suspect]
     Active Substance: CYCLOPHOSPHAMIDE
     Indication: Diffuse large B-cell lymphoma
     Dosage: 1426 MG/M2, TIW (ON 12/JUL/2022 AT 8:10 PM, HE RECEIVED THE MOST RECENT DOSE OF CYCLOPHOSPHAMIDE (14
     Route: 042
     Dates: start: 20220712
  3. PREDNISONE [Suspect]
     Active Substance: PREDNISONE
     Indication: Diffuse large B-cell lymphoma
     Dosage: 100 MG (ON 16/JUL/2022, HE RECEIVED THE MOST RECENT DOSE OF PREDNISONE (100 MG) PRIOR TO AE ONSET)
     Route: 048
     Dates: start: 20220712
  4. POLATUZUMAB VEDOTIN [Suspect]
     Active Substance: POLATUZUMAB VEDOTIN
     Indication: Diffuse large B-cell lymphoma
     Dosage: 130 MG (ON 12/JUL/2022 AT 10:30 PM, HE RECEIVED THE MOST RECENT DOSE OF POLATUZUMAB VEDOTIN (130 MG)
     Route: 042
     Dates: start: 20220712
  5. DOXORUBICIN [Suspect]
     Active Substance: DOXORUBICIN
     Indication: Diffuse large B-cell lymphoma
     Dosage: 95 MG/M2, TIW (ON 12/JUL/2022 AT 9:00 PM, HE RECEIVED THE MOST RECENT DOSE OF DOXORUBICIN (95 MG/M2)
     Route: 048
     Dates: start: 20220712
  6. VINCRISTINE [Suspect]
     Active Substance: VINCRISTINE
     Indication: Diffuse large B-cell lymphoma
     Dosage: UNK
     Route: 042
  7. SKENAN [Concomitant]
     Active Substance: MORPHINE SULFATE
     Indication: Pain
     Dosage: UNK
     Route: 065
  8. LYRICA [Concomitant]
     Active Substance: PREGABALIN
     Indication: Restless legs syndrome
     Dosage: UNK
     Route: 065
  9. MORPHINE SULFATE [Concomitant]
     Active Substance: MORPHINE SULFATE
     Indication: Pain
     Dosage: UNK
     Route: 065
  10. ACETAMINOPHEN [Concomitant]
     Active Substance: ACETAMINOPHEN
     Indication: Product used for unknown indication
     Dosage: 1 G
     Route: 065
     Dates: start: 20220712, end: 20220712
  11. ACETAMINOPHEN [Concomitant]
     Active Substance: ACETAMINOPHEN
     Dosage: 1 G
     Route: 065
     Dates: start: 20220802
  12. POLARAMINE [Concomitant]
     Active Substance: DEXCHLORPHENIRAMINE MALEATE
     Indication: Product used for unknown indication
     Dosage: 5 MG
     Route: 065
     Dates: start: 20220712, end: 20220712
  13. POLARAMINE [Concomitant]
     Active Substance: DEXCHLORPHENIRAMINE MALEATE
     Dosage: 5 MG
     Route: 065
     Dates: start: 20220802

REACTIONS (1)
  - Neutropenia [Recovered/Resolved]

NARRATIVE: CASE EVENT DATE: 20220720
